FAERS Safety Report 23218020 (Version 1)
Quarter: 2023Q4

REPORT INFORMATION
  Report Type: Report from Study
  Country: US (occurrence: None)
  Receive Date: 20231122
  Receipt Date: 20231122
  Transmission Date: 20240110
  Serious: Yes (Other)
  Sender: FDA-Public Use
  Company Number: 2023A261463

PATIENT
  Age: 28075 Day
  Sex: Male

DRUGS (1)
  1. LYNPARZA [Suspect]
     Active Substance: OLAPARIB
     Indication: Prostate cancer
     Route: 048
     Dates: start: 20230920

REACTIONS (6)
  - Retinal detachment [Unknown]
  - COVID-19 [Unknown]
  - Oropharyngeal candidiasis [Unknown]
  - Asthenia [Unknown]
  - Fatigue [Unknown]
  - Abdominal pain upper [Unknown]
